FAERS Safety Report 6270247-0 (Version None)
Quarter: 2009Q3

REPORT INFORMATION
  Report Type: 
  Country: None (occurrence: None)
  Receive Date: 20090716
  Receipt Date: 20090630
  Transmission Date: 20100115
  Serious: No
  Sender: FDA-Public Use
  Company Number: US-BAYER-200912008BCC

PATIENT
  Age: 59 Year
  Sex: Female
  Weight: 127 kg

DRUGS (9)
  1. ALEVE [Suspect]
     Indication: NERVE COMPRESSION
     Dosage: TOTAL DAILY DOSE: 440 MG  UNIT DOSE: 220 MG
     Route: 048
     Dates: start: 20090625, end: 20090625
  2. TYLENOL (CAPLET) [Concomitant]
     Route: 065
  3. PROPOXY-NIAPAP (GENERIC FOR DARVAN) [Concomitant]
     Route: 065
  4. METFORMIN HCL [Concomitant]
     Route: 065
  5. PRAVASTATIN [Concomitant]
     Route: 065
  6. CENTRUM SILVER MULTIVITAMIN [Concomitant]
     Route: 065
  7. FIBERCHOICE [Concomitant]
     Route: 065
  8. GENIRIC BABY ASPIRIN [Concomitant]
     Route: 065
  9. PRESCRIPTION PAIN MEDICATION [Concomitant]
     Indication: BACK PAIN
     Route: 065

REACTIONS (1)
  - BACK PAIN [None]
